FAERS Safety Report 9551067 (Version 22)
Quarter: 2022Q2

REPORT INFORMATION
  Report Type: Other
  Country: CA (occurrence: None)
  Receive Date: 20130925
  Receipt Date: 20220607
  Transmission Date: 20220720
  Serious: Yes (Hospitalization, Other)
  Sender: FDA-Public Use
  Company Number: CA-ROCHE-1167682

PATIENT
  Age: 65 Year
  Sex: Female
  Weight: 89 kg

DRUGS (16)
  1. RITUXAN [Suspect]
     Active Substance: RITUXIMAB
     Indication: Rheumatoid arthritis
     Dosage: DATE OF LAST DOSE: 12/NOV/2013?DATE OF MOST RECENT RITUXIMAB INFUSION: 02/FEB/2016, 08/MAY/2017
     Route: 042
     Dates: start: 20120223
  2. RITUXAN [Suspect]
     Active Substance: RITUXIMAB
     Route: 042
     Dates: start: 20121207
  3. RITUXAN [Suspect]
     Active Substance: RITUXIMAB
     Route: 042
     Dates: start: 20161013
  4. METHYLPREDNISOLONE [Suspect]
     Active Substance: METHYLPREDNISOLONE
     Indication: Premedication
     Route: 042
     Dates: start: 20120223
  5. LEUCOVORIN [Concomitant]
     Active Substance: LEUCOVORIN
  6. CRESTOR [Concomitant]
     Active Substance: ROSUVASTATIN CALCIUM
  7. ASPIRIN [Concomitant]
     Active Substance: ASPIRIN
  8. ATIVAN [Concomitant]
     Active Substance: LORAZEPAM
  9. DIPHENHYDRAMINE HYDROCHLORIDE [Concomitant]
     Active Substance: DIPHENHYDRAMINE HYDROCHLORIDE
     Indication: Premedication
     Route: 048
     Dates: start: 20120223
  10. ACETAMINOPHEN [Concomitant]
     Active Substance: ACETAMINOPHEN
     Indication: Premedication
     Route: 048
     Dates: start: 20120223
  11. ACETAMINOPHEN [Concomitant]
     Active Substance: ACETAMINOPHEN
     Route: 048
     Dates: start: 20121207
  12. METHOTREXATE [Concomitant]
     Active Substance: METHOTREXATE
  13. CITALOPRAM [Concomitant]
     Active Substance: CITALOPRAM HYDROBROMIDE
  14. METOPROLOL [Concomitant]
     Active Substance: METOPROLOL
  15. INSULIN NOS [Concomitant]
     Active Substance: INSULIN NOS
  16. METFORMIN [Concomitant]
     Active Substance: METFORMIN HYDROCHLORIDE

REACTIONS (24)
  - Oesophageal rupture [Unknown]
  - Knee arthroplasty [Unknown]
  - Blood glucose abnormal [Unknown]
  - Emotional distress [Unknown]
  - Blood glucose increased [Unknown]
  - Impaired gastric emptying [Not Recovered/Not Resolved]
  - Hip fracture [Unknown]
  - Cerebral haemorrhage [Unknown]
  - Concussion [Unknown]
  - Postoperative wound infection [Unknown]
  - Pruritus [Recovered/Resolved]
  - Ear infection [Recovered/Resolved]
  - Blood pressure increased [Unknown]
  - Ear pruritus [Recovered/Resolved]
  - Nasopharyngitis [Not Recovered/Not Resolved]
  - Pharyngitis [Recovered/Resolved]
  - Blood pressure fluctuation [Unknown]
  - Arthralgia [Not Recovered/Not Resolved]
  - Pain [Not Recovered/Not Resolved]
  - Infusion related reaction [Unknown]
  - Fall [Unknown]
  - Joint swelling [Not Recovered/Not Resolved]
  - Rheumatoid arthritis [Unknown]
  - Diarrhoea [Recovered/Resolved]

NARRATIVE: CASE EVENT DATE: 20121207
